FAERS Safety Report 9759905 (Version 4)
Quarter: 2014Q1

REPORT INFORMATION
  Report Type: Spontaneous
  Country: DE (occurrence: DE)
  Receive Date: 20131216
  Receipt Date: 20140316
  Transmission Date: 20141002
  Serious: Yes (Hospitalization, Other)
  Sender: FDA-Public Use
  Company Number: DE-JNJFOC-20131208314

PATIENT
  Age: 73 Year
  Sex: Female
  Weight: 86 kg

DRUGS (15)
  1. XARELTO [Suspect]
     Indication: CEREBROVASCULAR ACCIDENT PROPHYLAXIS
     Route: 048
     Dates: start: 20130601, end: 20131122
  2. XARELTO [Suspect]
     Indication: ATRIAL FIBRILLATION
     Route: 048
     Dates: start: 20130601, end: 20131122
  3. LYRICA [Concomitant]
     Route: 065
  4. SORTIS (ATORVASTATIN) [Concomitant]
     Route: 065
  5. VIGANTOLETTEN [Concomitant]
     Route: 065
  6. MAGNESIUM [Concomitant]
     Route: 065
  7. SIOFOR [Concomitant]
     Route: 065
  8. GALVUS [Concomitant]
     Route: 065
  9. FUROSEMID [Concomitant]
     Route: 065
  10. PANTOZOL [Concomitant]
     Route: 065
  11. LAMOTRIGINE [Concomitant]
     Route: 065
  12. BELOC ZOK [Concomitant]
     Route: 065
  13. ALDACTONE [Concomitant]
     Route: 065
  14. LANTUS [Concomitant]
     Route: 065
  15. INSUMAN RAPID [Concomitant]
     Route: 065

REACTIONS (4)
  - Skin ulcer [Recovering/Resolving]
  - Skin haemorrhage [Recovering/Resolving]
  - Onycholysis [Recovering/Resolving]
  - Pruritus [Recovering/Resolving]
